FAERS Safety Report 16393099 (Version 1)
Quarter: 2019Q2

REPORT INFORMATION
  Report Type: Spontaneous
  Country: TR (occurrence: TR)
  Receive Date: 20190605
  Receipt Date: 20190605
  Transmission Date: 20190711
  Serious: Yes (Other)
  Sender: FDA-Public Use
  Company Number: US-SLATE RUN PHARMACEUTICALS-SLTR-AE-19-48

PATIENT
  Age: 26 Year
  Sex: Female

DRUGS (5)
  1. SEVELAMER [Concomitant]
     Active Substance: SEVELAMER
  2. AMLODIPINE [Concomitant]
     Active Substance: AMLODIPINE BESYLATE
  3. CINACALCET HYDROCHLORIDE TABLET [Suspect]
     Active Substance: CINACALCET HYDROCHLORIDE
     Indication: HYPERPARATHYROIDISM
  4. CALCITRIOL. [Concomitant]
     Active Substance: CALCITRIOL
     Route: 048
  5. CALCIUM ACETATE. [Concomitant]
     Active Substance: CALCIUM ACETATE

REACTIONS (2)
  - Paraplegia [Unknown]
  - Brown tumour [Recovered/Resolved]

NARRATIVE: CASE EVENT DATE: 201708
